FAERS Safety Report 10203123 (Version 1)
Quarter: 2014Q2

REPORT INFORMATION
  Report Type: Spontaneous
  Country: US (occurrence: US)
  Receive Date: 20140529
  Receipt Date: 20140529
  Transmission Date: 20141212
  Serious: No
  Sender: FDA-Public Use
  Company Number: US-009507513-1404USA001024

PATIENT
  Sex: Female

DRUGS (1)
  1. OXYTROL FOR WOMEN [Suspect]
     Dosage: UNK UNK, UNKNOWN
     Route: 062
     Dates: start: 20140324

REACTIONS (4)
  - Fatigue [Unknown]
  - Lacrimation increased [Unknown]
  - Somnolence [Unknown]
  - Dry eye [Unknown]
